FAERS Safety Report 9423467 (Version 1)
Quarter: 2013Q3

REPORT INFORMATION
  Report Type: Report from Study
  Country: ZW (occurrence: ZW)
  Receive Date: 20130726
  Receipt Date: 20130726
  Transmission Date: 20140515
  Serious: Yes (Hospitalization)
  Sender: FDA-Public Use
  Company Number: ZW-ABBOTT-13P-190-1122557-00

PATIENT
  Age: 40 Year
  Sex: Male

DRUGS (8)
  1. ALUVIA [Suspect]
     Indication: HIV INFECTION
     Route: 048
     Dates: start: 20101206, end: 20130515
  2. RALTEGRAVIR [Concomitant]
     Indication: HIV INFECTION
     Dates: start: 20130515
  3. DARUNAVIR [Concomitant]
     Indication: HIV INFECTION
     Dates: start: 20130515
  4. RITONAVIR [Concomitant]
     Indication: HIV INFECTION
     Dates: start: 20130515
  5. TENOLAM [Concomitant]
     Indication: PRODUCT USED FOR UNKNOWN INDICATION
     Dates: start: 20130515
  6. ABACAVIR [Concomitant]
     Indication: HIV INFECTION
     Dates: start: 20130125, end: 20130515
  7. DIDANOSINE [Concomitant]
     Indication: PRODUCT USED FOR UNKNOWN INDICATION
     Dates: start: 20130125, end: 20130515
  8. DAPSONE [Concomitant]
     Indication: PRODUCT USED FOR UNKNOWN INDICATION
     Dates: start: 20090923

REACTIONS (1)
  - Right ventricular failure [Recovered/Resolved]
